FAERS Safety Report 17908327 (Version 1)
Quarter: 2020Q2

REPORT INFORMATION
  Report Type: Spontaneous
  Country: US (occurrence: US)
  Receive Date: 20200617
  Receipt Date: 20200617
  Transmission Date: 20200714
  Serious: No
  Sender: FDA-Public Use
  Company Number: US-TOLMAR, INC.-20US020087

PATIENT
  Age: 15 Year
  Sex: Female

DRUGS (1)
  1. ELIGARD [Suspect]
     Active Substance: LEUPROLIDE ACETATE
     Indication: GENDER DYSPHORIA
     Dosage: 45 MG, Q 6 MONTH
     Route: 058
     Dates: start: 20200121

REACTIONS (5)
  - Device leakage [None]
  - Off label use [Unknown]
  - Wrong technique in product usage process [None]
  - Syringe issue [None]
  - Incorrect dose administered [None]

NARRATIVE: CASE EVENT DATE: 20200121
